FAERS Safety Report 8869359 (Version 1)
Quarter: 2012Q4

REPORT INFORMATION
  Report Type: Spontaneous
  Country: GB (occurrence: None)
  Receive Date: 20121022
  Receipt Date: 20121022
  Transmission Date: 20130627
  Serious: Yes (Disabling)
  Sender: FDA-Public Use
  Company Number: 2012-01540

PATIENT
  Age: 31 Year
  Sex: Male
  Weight: 73.02 kg

DRUGS (5)
  1. QUETIAPINE [Suspect]
     Indication: DRUG USE FOR UNKNOWN INDICATION
     Route: 048
     Dates: start: 20110606, end: 20120827
  2. ALLIUM SATIVUM (GARLIC EXTRACT) [Concomitant]
  3. SILYBUM MARIANUM (MILK THISTLE SEED EXTRACT) [Concomitant]
  4. PASSIFLORA [Concomitant]
  5. VALERIANA OFFICINALIS (VALERIAN ROOT DRY EXTRACT) [Concomitant]

REACTIONS (8)
  - Drug withdrawal syndrome [None]
  - Discomfort [None]
  - Pollakiuria [None]
  - Insomnia [None]
  - Pruritus [None]
  - Diarrhoea [None]
  - Rhinorrhoea [None]
  - Lacrimation increased [None]
